FAERS Safety Report 17831768 (Version 1)
Quarter: 2020Q2

REPORT INFORMATION
  Report Type: Spontaneous
  Country: US (occurrence: US)
  Receive Date: 20200528
  Receipt Date: 20200528
  Transmission Date: 20200714
  Serious: Yes (Hospitalization, Other)
  Sender: FDA-Public Use
  Company Number: US-SUN PHARMACEUTICAL INDUSTRIES LTD-2020R1-247823

PATIENT
  Age: 61 Year
  Sex: Female

DRUGS (1)
  1. PREDNISONE. [Suspect]
     Active Substance: PREDNISONE
     Indication: GLOMERULONEPHRITIS MINIMAL LESION
     Dosage: UNK (DOSE TAPERED)
     Route: 065

REACTIONS (7)
  - Hypoxia [Unknown]
  - Hepatic cirrhosis [Unknown]
  - Hepatitis B reactivation [Unknown]
  - Hypotension [Unknown]
  - Pneumonia [Unknown]
  - Tachycardia [Unknown]
  - Pulmonary embolism [Unknown]
